FAERS Safety Report 10133489 (Version 1)
Quarter: 2014Q2

REPORT INFORMATION
  Report Type: Report from Study
  Country: US (occurrence: US)
  Receive Date: 20140428
  Receipt Date: 20140428
  Transmission Date: 20141212
  Serious: Yes (Other)
  Sender: FDA-Public Use
  Company Number: PHEH2014US007992

PATIENT
  Age: 77 Year
  Sex: Male
  Weight: 82.86 kg

DRUGS (15)
  1. TASIGNA [Suspect]
     Indication: CHRONIC MYELOID LEUKAEMIA
     Dosage: 150 MG, BID
     Route: 048
     Dates: start: 20131220
  2. CETIRIZINE HCL [Concomitant]
  3. DILTIAZEM XR [Concomitant]
  4. DULCOLAX [Concomitant]
  5. ENEMA [Concomitant]
  6. LASIX [Concomitant]
  7. LIPITOR [Concomitant]
  8. LISINOPRIL [Concomitant]
  9. ASPIRIN E.C [Concomitant]
  10. MAGNESIUM CITRATE [Concomitant]
  11. MIRALAX [Concomitant]
  12. NITROSTAT [Concomitant]
  13. PLAVIX [Concomitant]
  14. POTASSIUM CHLORIDE [Concomitant]
  15. TYLENOL [Concomitant]

REACTIONS (2)
  - Fall [Unknown]
  - Face injury [Unknown]
